FAERS Safety Report 25499903 (Version 1)
Quarter: 2025Q3

REPORT INFORMATION
  Report Type: Spontaneous
  Country: JP (occurrence: JP)
  Receive Date: 20250701
  Receipt Date: 20250701
  Transmission Date: 20251021
  Serious: Yes (Hospitalization)
  Sender: ELI LILLY AND COMPANY
  Company Number: JP-ELI_LILLY_AND_COMPANY-JP202504011663

PATIENT
  Age: 76 Year
  Sex: Male
  Weight: 77.2 kg

DRUGS (4)
  1. RETEVMO [Suspect]
     Active Substance: SELPERCATINIB
     Indication: Non-small cell lung cancer recurrent
     Dosage: 160 MG, BID
     Route: 048
     Dates: start: 20250210, end: 20250307
  2. AMLODIPINE BESYLATE\AZILSARTAN [Concomitant]
     Active Substance: AMLODIPINE BESYLATE\AZILSARTAN
     Dosage: 1 DOSAGE FORM, DAILY
     Route: 048
  3. RABEPRAZOLE SODIUM [Concomitant]
     Active Substance: RABEPRAZOLE SODIUM
     Dosage: 10 MG, DAILY
     Route: 048
  4. ETIZOLAM [Concomitant]
     Active Substance: ETIZOLAM
     Dosage: 1 MG, DAILY
     Route: 048

REACTIONS (3)
  - Hepatic enzyme increased [Recovering/Resolving]
  - Platelet count decreased [Recovered/Resolved]
  - Hypersensitivity [Recovering/Resolving]

NARRATIVE: CASE EVENT DATE: 20250305
